FAERS Safety Report 23429722 (Version 6)
Quarter: 2024Q2

REPORT INFORMATION
  Report Type: Report from Study
  Country: US (occurrence: US)
  Receive Date: 20240122
  Receipt Date: 20240605
  Transmission Date: 20240715
  Serious: Yes (Other)
  Sender: FDA-Public Use
  Company Number: US-TAKEDA-2024TUS004655

PATIENT
  Age: 60 Year
  Sex: Female

DRUGS (6)
  1. FRUQUINTINIB [Suspect]
     Active Substance: FRUQUINTINIB
     Indication: Appendix cancer
     Dosage: 5 MILLIGRAM
     Route: 048
     Dates: start: 20240109
  2. FRUQUINTINIB [Suspect]
     Active Substance: FRUQUINTINIB
     Indication: Neoplasm malignant
     Dosage: 5 MILLIGRAM
     Route: 048
  3. FRUQUINTINIB [Suspect]
     Active Substance: FRUQUINTINIB
     Indication: Breast cancer female
     Dosage: 5 MILLIGRAM
     Route: 048
     Dates: end: 20240222
  4. FRUQUINTINIB [Suspect]
     Active Substance: FRUQUINTINIB
     Dosage: 5 MILLIGRAM, QD
     Route: 048
  5. ELIQUIS [Concomitant]
     Active Substance: APIXABAN
     Dosage: UNK
     Route: 065
  6. PROMETHAZINE [Concomitant]
     Active Substance: PROMETHAZINE HYDROCHLORIDE
     Dosage: UNK
     Route: 065

REACTIONS (15)
  - Abdominal pain upper [Recovered/Resolved]
  - Vision blurred [Recovered/Resolved]
  - Headache [Recovering/Resolving]
  - Muscular weakness [Recovering/Resolving]
  - Bone pain [Recovering/Resolving]
  - Arthralgia [Recovering/Resolving]
  - Blood pressure increased [Unknown]
  - Asthenia [Recovering/Resolving]
  - Malaise [Recovered/Resolved]
  - Aphonia [Recovered/Resolved]
  - Dry skin [Unknown]
  - Dysphonia [Not Recovered/Not Resolved]
  - Pain [Not Recovered/Not Resolved]
  - Drug ineffective [Recovered/Resolved]
  - Off label use [Unknown]

NARRATIVE: CASE EVENT DATE: 20240101
